FAERS Safety Report 23871658 (Version 3)
Quarter: 2025Q4

REPORT INFORMATION
  Report Type: Report from Study
  Country: US (occurrence: US)
  Receive Date: 20240519
  Receipt Date: 20251219
  Transmission Date: 20260118
  Serious: Yes (Hospitalization, Other)
  Sender: ABBVIE
  Company Number: US-ABBVIE-5759648

PATIENT
  Age: 40 Year
  Sex: Male
  Weight: 90.718 kg

DRUGS (12)
  1. HUMIRA [Suspect]
     Active Substance: ADALIMUMAB
     Indication: Hidradenitis
     Dosage: FORM STRENGTH: 80 MILLIGRAM
     Route: 058
     Dates: start: 20180226, end: 20240412
  2. MINOCYCLINE [Concomitant]
     Active Substance: MINOCYCLINE HYDROCHLORIDE
     Indication: Product used for unknown indication
     Dosage: FORM STRENGTH: 100 MILLIGRAM
     Route: 065
  3. VITAMIN D3 [Concomitant]
     Active Substance: CHOLECALCIFEROL
     Indication: Vitamin supplementation
     Route: 065
  4. OXCARBAZEPINE [Concomitant]
     Active Substance: OXCARBAZEPINE
     Indication: Bipolar disorder
     Dosage: FORM STRENGTH: 150 MILLIGRAM
     Route: 065
  5. TELMISARTAN [Concomitant]
     Active Substance: TELMISARTAN
     Indication: Hypertension
     Dosage: FORM STRENGTH: 25 MILLIGRAM
     Route: 065
  6. METOPROLOL SUCCINATE [Concomitant]
     Active Substance: METOPROLOL SUCCINATE
     Indication: Blood pressure measurement
     Route: 065
  7. ATORVASTATIN [Concomitant]
     Active Substance: ATORVASTATIN
     Indication: Blood cholesterol
     Dosage: FORM STRENGTH: 25 MILLIGRAM
     Route: 065
  8. JANUMET [Concomitant]
     Active Substance: METFORMIN HYDROCHLORIDE\SITAGLIPTIN PHOSPHATE
     Indication: Diabetes mellitus
     Route: 065
  9. OMEGA 3 [Concomitant]
     Active Substance: CAPSAICIN
     Indication: Vitamin supplementation
     Route: 065
  10. METRONIDAZOLE [Concomitant]
     Active Substance: METRONIDAZOLE
     Indication: Arthritis infective
     Dosage: FORM STRENGTH: 500 MILLIGRAM
     Route: 065
  11. OLANZAPINE [Concomitant]
     Active Substance: OLANZAPINE
     Indication: Bipolar disorder
     Dosage: FORM STRENGTH: 10 MILLIGRAM
     Route: 065
  12. GLIMEPIRIDE [Concomitant]
     Active Substance: GLIMEPIRIDE
     Indication: Diabetes mellitus
     Dosage: FORM STRENGTH: 25 MILLIGRAM
     Route: 065

REACTIONS (7)
  - Joint fistula [Recovered/Resolved]
  - Arthritis infective [Recovering/Resolving]
  - Hip surgery [Recovering/Resolving]
  - Joint swelling [Recovering/Resolving]
  - Anal fistula [Unknown]
  - Pain [Recovering/Resolving]
  - Mental disability [Unknown]

NARRATIVE: CASE EVENT DATE: 20240401
